FAERS Safety Report 10882503 (Version 1)
Quarter: 2015Q1

REPORT INFORMATION
  Report Type: Report from Study
  Country: CA (occurrence: CA)
  Receive Date: 20150303
  Receipt Date: 20150303
  Transmission Date: 20150721
  Serious: Yes (Hospitalization)
  Sender: FDA-Public Use
  Company Number: CA-ABBVIE-15P-028-1353652-00

PATIENT
  Sex: Male
  Weight: 73.55 kg

DRUGS (1)
  1. LUPRON DEPOT [Suspect]
     Active Substance: LEUPROLIDE ACETATE
     Indication: PROSTATE CANCER
     Route: 030
     Dates: start: 20150106

REACTIONS (2)
  - Escherichia urinary tract infection [Unknown]
  - Kidney infection [Unknown]

NARRATIVE: CASE EVENT DATE: 2015
